FAERS Safety Report 10251880 (Version 1)
Quarter: 2014Q2

REPORT INFORMATION
  Report Type: Spontaneous
  Country: FR (occurrence: FR)
  Receive Date: 20140623
  Receipt Date: 20140623
  Transmission Date: 20141212
  Serious: Yes (Hospitalization)
  Sender: FDA-Public Use
  Company Number: FR-ASTRAZENECA-2014SE45298

PATIENT
  Age: 27028 Day
  Sex: Female

DRUGS (11)
  1. INEXIUM [Suspect]
     Route: 048
     Dates: start: 20140113, end: 20140123
  2. PIPERACILLINE TAZOBACTAM MYLAN [Suspect]
     Route: 042
     Dates: start: 20140113, end: 20140123
  3. CIFLOX [Suspect]
     Route: 048
     Dates: start: 20140113, end: 20140123
  4. BRICANYL [Concomitant]
     Dates: start: 20140113
  5. IPRATROPIUM [Concomitant]
     Dates: start: 20140113
  6. PEGASYS [Concomitant]
  7. COPEGUS [Concomitant]
  8. INCIVO [Concomitant]
  9. LEVOTHYROX [Concomitant]
  10. EPREX [Concomitant]
  11. SPECIAFOLDINE [Concomitant]

REACTIONS (2)
  - Purpura [Recovered/Resolved]
  - Thrombocytopenia [Recovered/Resolved]
